FAERS Safety Report 6310454-1 (Version None)
Quarter: 2009Q3

REPORT INFORMATION
  Report Type: 
  Country: None (occurrence: None)
  Receive Date: 20090814
  Receipt Date: 20090810
  Transmission Date: 20100115
  Serious: Yes (Death, Life-Threatening, Hospitalization)
  Sender: FDA-Public Use
  Company Number: NL-ROCHE-649560

PATIENT
  Sex: Male
  Weight: 80 kg

DRUGS (5)
  1. XELODA [Suspect]
     Dosage: FREQUENCY: PER OS.
     Route: 065
     Dates: start: 20090717, end: 20090727
  2. AVASTIN [Suspect]
     Route: 042
     Dates: start: 20090717, end: 20090727
  3. ZOFRAN ZIDIS [Concomitant]
     Route: 048
     Dates: start: 20090717, end: 20090727
  4. PRIMERAN [Concomitant]
     Dosage: FREQUENCY:PRN.
     Route: 054
     Dates: start: 20090717, end: 20090727
  5. OXALIPLATIN [Concomitant]
     Dates: start: 20090717

REACTIONS (8)
  - DEATH [None]
  - DIARRHOEA [None]
  - INTESTINAL ISCHAEMIA [None]
  - LEUKOPENIA [None]
  - NEUTROPENIA [None]
  - PULMONARY HAEMORRHAGE [None]
  - SEPSIS [None]
  - VOMITING [None]
